FAERS Safety Report 18684649 (Version 1)
Quarter: 2020Q4

REPORT INFORMATION
  Report Type: Not Available
  Country: None (occurrence: None)
  Receive Date: 20201230
  Receipt Date: 20201230
  Transmission Date: 20210114
  Serious: No
  Sender: FDA-Public Use
  Company Number: US-AKORN-158783

PATIENT
  Sex: Female

DRUGS (1)
  1. ERYTHROMYCIN OPHTHALMIC OINTMENT [Suspect]
     Active Substance: ERYTHROMYCIN

REACTIONS (3)
  - Foreign body sensation in eyes [Recovered/Resolved]
  - Eye irritation [Recovered/Resolved]
  - Ocular hyperaemia [Recovered/Resolved]

NARRATIVE: CASE EVENT DATE: 20201205
